FAERS Safety Report 20434615 (Version 1)
Quarter: 2022Q1

REPORT INFORMATION
  Report Type: Spontaneous
  Country: NL (occurrence: NL)
  Receive Date: 20220206
  Receipt Date: 20220206
  Transmission Date: 20220424
  Serious: Yes (Other)
  Sender: FDA-Public Use
  Company Number: None

PATIENT
  Sex: Male
  Weight: 106 kg

DRUGS (1)
  1. AMITRIPTYLINE HYDROCHLORIDE [Suspect]
     Active Substance: AMITRIPTYLINE HYDROCHLORIDE
     Indication: Neuralgia
     Dosage: 25 MG, QD (1X PER DAG 1 STUK) (GENEESMIDDEL VOORGESCHREVEN DOOR ARTS: JA)
     Route: 065
     Dates: start: 20211007

REACTIONS (4)
  - Depressed level of consciousness [Recovered/Resolved]
  - Peripheral coldness [Recovered/Resolved]
  - Dry eye [Recovered/Resolved]
  - Dry mouth [Recovered/Resolved]
